FAERS Safety Report 21793162 (Version 2)
Quarter: 2023Q1

REPORT INFORMATION
  Report Type: Report from Study
  Country: US (occurrence: US)
  Receive Date: 20221229
  Receipt Date: 20230111
  Transmission Date: 20230418
  Serious: Yes (Other)
  Sender: FDA-Public Use
  Company Number: US-AMGEN-USASL2022218359

PATIENT
  Age: 63 Year
  Sex: Female

DRUGS (1)
  1. REPATHA [Suspect]
     Active Substance: EVOLOCUMAB
     Indication: Blood cholesterol increased
     Dosage: 140 MILLIGRAM, Q2WK
     Route: 065
     Dates: start: 20221209

REACTIONS (5)
  - Hip arthroplasty [Unknown]
  - Influenza like illness [Unknown]
  - Gait disturbance [Recovering/Resolving]
  - Procedural pain [Recovering/Resolving]
  - Impaired quality of life [Recovering/Resolving]

NARRATIVE: CASE EVENT DATE: 20221201
